FAERS Safety Report 15043132 (Version 1)
Quarter: 2018Q2

REPORT INFORMATION
  Report Type: Spontaneous
  Country: US (occurrence: US)
  Receive Date: 20180621
  Receipt Date: 20180621
  Transmission Date: 20180711
  Serious: No
  Sender: FDA-Public Use
  Company Number: US-GLAXOSMITHKLINE-US2018109102

PATIENT
  Age: 66 Year
  Sex: Female

DRUGS (14)
  1. NUCALA [Suspect]
     Active Substance: MEPOLIZUMAB
     Indication: CHRONIC OBSTRUCTIVE PULMONARY DISEASE
     Dosage: UNK UNK, CYC
     Route: 058
     Dates: start: 2017
  2. MELOXICAM. [Concomitant]
     Active Substance: MELOXICAM
  3. REMERON [Concomitant]
     Active Substance: MIRTAZAPINE
  4. IPRATROPIUM NEBULIZER SOLUTION [Concomitant]
  5. LEVALBUTEROL SOLUTION [Concomitant]
  6. OXYCODONE [Concomitant]
     Active Substance: OXYCODONE
  7. NYSTATIN. [Concomitant]
     Active Substance: NYSTATIN
  8. PERFOROMIST [Concomitant]
     Active Substance: FORMOTEROL FUMARATE DIHYDRATE
  9. COZAAR [Concomitant]
     Active Substance: LOSARTAN POTASSIUM
  10. PREDNISONE. [Concomitant]
     Active Substance: PREDNISONE
  11. SINGULAIR [Concomitant]
     Active Substance: MONTELUKAST SODIUM
  12. ZYRTEC [Concomitant]
     Active Substance: CETIRIZINE HYDROCHLORIDE
  13. AZITHROMYCIN ANHYDROUS. [Concomitant]
     Active Substance: AZITHROMYCIN ANHYDROUS
  14. XANAX [Concomitant]
     Active Substance: ALPRAZOLAM

REACTIONS (3)
  - Off label use [Unknown]
  - Product use in unapproved indication [Unknown]
  - Nail bed disorder [Not Recovered/Not Resolved]

NARRATIVE: CASE EVENT DATE: 201805
